FAERS Safety Report 7486417-X (Version None)
Quarter: 2011Q2

REPORT INFORMATION
  Report Type: 
  Country: None (occurrence: None)
  Receive Date: 20110516
  Receipt Date: 20110516
  Transmission Date: 20111010
  Serious: No
  Sender: FDA-Public Use
  Company Number: None

PATIENT
  Sex: Male

DRUGS (1)
  1. STELARA [Suspect]
     Dosage: 45MG Q12H SQ
     Route: 058
     Dates: start: 20110407, end: 20110501

REACTIONS (2)
  - GENITAL RASH [None]
  - RASH GENERALISED [None]
